FAERS Safety Report 16955077 (Version 1)
Quarter: 2019Q4

REPORT INFORMATION
  Report Type: Report from Study
  Country: FR (occurrence: FR)
  Receive Date: 20191024
  Receipt Date: 20191024
  Transmission Date: 20200122
  Serious: Yes (Hospitalization)
  Sender: FDA-Public Use
  Company Number: FR-ROCHE-2423951

PATIENT
  Age: 75 Year
  Sex: Male

DRUGS (10)
  1. PARACETAMOL [Concomitant]
     Active Substance: ACETAMINOPHEN
  2. 5-FU [FLUOROURACIL] [Suspect]
     Active Substance: FLUOROURACIL
     Route: 065
  3. CISPLATIN. [Suspect]
     Active Substance: CISPLATIN
     Indication: ANAL CANCER
     Dosage: LAST DOSE (55 MG) PRIOR TO SAE ON 24/SEP/2019
     Route: 065
     Dates: start: 20190808
  4. 5-FU [FLUOROURACIL] [Suspect]
     Active Substance: FLUOROURACIL
     Indication: ANAL CANCER
     Dosage: LAST DOSE (3300 MG) PRIOR TO SAE ON 24/SEP/2019
     Route: 065
     Dates: start: 20190808
  5. METFORMINE [METFORMIN] [Concomitant]
     Active Substance: METFORMIN HYDROCHLORIDE
  6. DOLIPRANE [Concomitant]
     Active Substance: ACETAMINOPHEN
  7. IZALGI [Concomitant]
     Active Substance: ACETAMINOPHEN\OPIUM
  8. CISPLATIN. [Suspect]
     Active Substance: CISPLATIN
     Route: 065
     Dates: start: 20190924
  9. ATEZOLIZUMAB. [Suspect]
     Active Substance: ATEZOLIZUMAB
     Indication: ANAL CANCER
     Route: 042
  10. DOCETAXEL. [Suspect]
     Active Substance: DOCETAXEL
     Indication: ANAL CANCER
     Dosage: LAST DOSE (72 MG) PRIOR TO SAE ON 24/SEP/2019
     Route: 065
     Dates: start: 20190808

REACTIONS (2)
  - Asthenia [Recovered/Resolved]
  - Device related infection [Recovered/Resolved]

NARRATIVE: CASE EVENT DATE: 20190918
